FAERS Safety Report 4610698-0 (Version None)
Quarter: 2005Q2

REPORT INFORMATION
  Report Type: 
  Country: None (occurrence: None)
  Receive Date: 20050301
  Receipt Date: 20041029
  Transmission Date: 20051028
  Serious: No
  Sender: FDA-Public Use
  Company Number: WAES 0410USA04453

PATIENT
  Age: 87 Year
  Sex: Female

DRUGS (1)
  1. ZETIA [Suspect]
     Dosage: PO
     Route: 048
     Dates: end: 20040930

REACTIONS (3)
  - OROPHARYNGEAL SWELLING [None]
  - SWELLING FACE [None]
  - SWOLLEN TONGUE [None]
